FAERS Safety Report 8465389-5 (Version None)
Quarter: 2012Q2

REPORT INFORMATION
  Report Type: 
  Country: None (occurrence: None)
  Receive Date: 20120323
  Receipt Date: 20111206
  Transmission Date: 20120825
  Serious: Yes (Other)
  Sender: FDA-Public Use
  Company Number: 163-21880-11093310

PATIENT
  Age: 73 Year
  Sex: Male
  Weight: 74.3899 kg

DRUGS (5)
  1. CIPROFLOXACIN [Concomitant]
  2. TRANSFUSION (BLOOD TRANSFUSION, AUXILIARY PRODUCTS) [Concomitant]
  3. REVLIMID [Suspect]
     Indication: MYELODYSPLASTIC SYNDROME
     Dosage: 10 MG, QD, PO
     Route: 048
     Dates: start: 20110701, end: 20111001
  4. NEXIUM [Concomitant]
  5. EXJADE [Concomitant]

REACTIONS (2)
  - DIARRHOEA [None]
  - WHITE BLOOD CELL COUNT DECREASED [None]
